FAERS Safety Report 19441436 (Version 1)
Quarter: 2021Q2

REPORT INFORMATION
  Report Type: Spontaneous
  Country: US (occurrence: US)
  Receive Date: 20210621
  Receipt Date: 20210621
  Transmission Date: 20210717
  Serious: Yes (Other)
  Sender: FDA-Public Use
  Company Number: US-TELIGENT, INC-20210600057

PATIENT

DRUGS (16)
  1. LIDOCAINE. [Suspect]
     Active Substance: LIDOCAINE
     Indication: GENERAL ANAESTHESIA
     Dosage: 200 MILLIGRAM
  2. LIDOCAINE. [Suspect]
     Active Substance: LIDOCAINE
     Dosage: 78 MILLIGRAM
  3. LIDOCAINE. [Suspect]
     Active Substance: LIDOCAINE
     Dosage: LIDOCAINE INFUSION AT 2MG/MIN
  4. FENTANYL. [Concomitant]
     Active Substance: FENTANYL
     Dosage: 200 MICROGRAM
  5. EPINEPHRINE. [Concomitant]
     Active Substance: EPINEPHRINE
     Dosage: 0.04 MCG/KG/MIN
  6. KETAMINE [Concomitant]
     Active Substance: KETAMINE
     Dosage: 10 MG/HR
  7. PROPOFOL. [Concomitant]
     Active Substance: PROPOFOL
     Dosage: 50 MILLIGRAM
  8. LIDOCAINE. [Suspect]
     Active Substance: LIDOCAINE
     Dosage: 100 MILLIGRAM
  9. VASOPRESSIN. [Concomitant]
     Active Substance: VASOPRESSIN
     Dosage: 0.03 UNITS/MIN
  10. LIDOCAINE. [Suspect]
     Active Substance: LIDOCAINE
     Dosage: INFUSED 4 MG/MIN
  11. EPOPROSTENOL. [Concomitant]
     Active Substance: EPOPROSTENOL
     Dosage: 50 NG/KG/MIN
  12. PHENYLEPHRINE [Concomitant]
     Active Substance: PHENYLEPHRINE HYDROCHLORIDE
     Dosage: 1.5 MCG/KG/MIN
  13. DEXMEDETOMIDINE. [Concomitant]
     Active Substance: DEXMEDETOMIDINE
     Dosage: 0.7 MCG/KG/HR
  14. ROCURONIUM [Concomitant]
     Active Substance: ROCURONIUM BROMIDE
     Dosage: 50 MILLIGRAM
  15. LIDOCAINE. [Suspect]
     Active Substance: LIDOCAINE
     Dosage: INFUSED 3 MG/MIN
  16. KETAMINE [Concomitant]
     Active Substance: KETAMINE
     Dosage: 34 MILLIGRAM

REACTIONS (2)
  - Generalised tonic-clonic seizure [Recovered/Resolved]
  - Neurotoxicity [Unknown]
